FAERS Safety Report 18615089 (Version 2)
Quarter: 2021Q3

REPORT INFORMATION
  Report Type: Report from Study
  Country: US (occurrence: US)
  Receive Date: 20201214
  Receipt Date: 20210702
  Transmission Date: 20211014
  Serious: No
  Sender: FDA-Public Use
  Company Number: US-TAKEDA-2020TUS056297

PATIENT
  Sex: Female
  Weight: 110 kg

DRUGS (35)
  1. XYZAL [Concomitant]
     Active Substance: LEVOCETIRIZINE DIHYDROCHLORIDE
  2. EPINEPHRINE. [Concomitant]
     Active Substance: EPINEPHRINE
  3. ZOFRAN [Concomitant]
     Active Substance: ONDANSETRON HYDROCHLORIDE
  4. TRAMADOL. [Concomitant]
     Active Substance: TRAMADOL
  5. COENZYME Q10 [Concomitant]
     Active Substance: DIETARY SUPPLEMENT\UBIDECARENONE
  6. LOVASTATIN. [Concomitant]
     Active Substance: LOVASTATIN
  7. ACETAMINOPHEN. [Concomitant]
     Active Substance: ACETAMINOPHEN
  8. ONDANSETRON [Concomitant]
     Active Substance: ONDANSETRON
  9. TRAVATAN Z [Concomitant]
     Active Substance: TRAVOPROST
  10. HUMAN NORMAL IMMUNOGLOBULIN; LIQUID [Suspect]
     Active Substance: HUMAN IMMUNOGLOBULIN G
     Indication: PRODUCT USED FOR UNKNOWN INDICATION
     Dosage: 50 GRAM, Q6WEEKS
     Route: 042
     Dates: start: 20171031
  11. METFORMIN [Concomitant]
     Active Substance: METFORMIN HYDROCHLORIDE
  12. HYDROCODONE/ACETAMINOPHEN [Concomitant]
     Active Substance: ACETAMINOPHEN\HYDROCODONE
  13. RANITIDINE. [Concomitant]
     Active Substance: RANITIDINE
  14. MELOXICAM. [Concomitant]
     Active Substance: MELOXICAM
  15. LOSARTAN. [Concomitant]
     Active Substance: LOSARTAN
  16. DIGOXIN. [Concomitant]
     Active Substance: DIGOXIN
  17. BACTROBAN [Concomitant]
     Active Substance: MUPIROCIN\MUPIROCIN CALCIUM
  18. FEXOFENADINE [Concomitant]
     Active Substance: FEXOFENADINE HYDROCHLORIDE
  19. ALBUTEROL [SALBUTAMOL] [Concomitant]
     Active Substance: ALBUTEROL
  20. ASPIRIN [ACETYLSALICYLIC ACID] [Concomitant]
     Active Substance: ASPIRIN
  21. CALCIUM CARBONATE. [Concomitant]
     Active Substance: CALCIUM CARBONATE
  22. CLOTRIMAZOLE AND BETAMETHASONE [Concomitant]
     Active Substance: BETAMETHASONE\CLOTRIMAZOLE
  23. CYANOCOBALAMIN. [Concomitant]
     Active Substance: CYANOCOBALAMIN
  24. DIPHENHYDRAMINE. [Concomitant]
     Active Substance: DIPHENHYDRAMINE
  25. NORMAL SALINE [Concomitant]
     Active Substance: SODIUM CHLORIDE
  26. TIZANIDINE. [Concomitant]
     Active Substance: TIZANIDINE
  27. METOCLOPRAMIDE. [Concomitant]
     Active Substance: METOCLOPRAMIDE
  28. ALBUTEROL [SALBUTAMOL] [Concomitant]
     Active Substance: ALBUTEROL
  29. HEPARIN [Concomitant]
     Active Substance: HEPARIN SODIUM
  30. LMX4 [Concomitant]
     Active Substance: LIDOCAINE
  31. SOLU?MEDROL [Concomitant]
     Active Substance: METHYLPREDNISOLONE SODIUM SUCCINATE
  32. OMEPRAZOLE. [Concomitant]
     Active Substance: OMEPRAZOLE
  33. TRIAMTERENE HCTZ [Concomitant]
     Active Substance: HYDROCHLOROTHIAZIDE\TRIAMTERENE
  34. CETIRIZINE [Concomitant]
     Active Substance: CETIRIZINE HYDROCHLORIDE
  35. POLYETHYLENE GLYCOL [Concomitant]
     Active Substance: POLYETHYLENE GLYCOLS

REACTIONS (3)
  - Urinary tract infection [Recovering/Resolving]
  - Back pain [Recovering/Resolving]
  - Eye pain [Recovering/Resolving]
